FAERS Safety Report 10143274 (Version 3)
Quarter: 2015Q1

REPORT INFORMATION
  Report Type: Report from Study
  Country: IT (occurrence: None)
  Receive Date: 20140428
  Receipt Date: 20150113
  Transmission Date: 20150720
  Serious: Yes (Other)
  Sender: FDA-Public Use
  Company Number: KAD201404-000432

PATIENT
  Age: 47 Year
  Sex: Male
  Weight: 57 kg

DRUGS (8)
  1. RITONAVIR (RITONAVIR) [Concomitant]
     Active Substance: RITONAVIR
  2. DACLATASVIR [Suspect]
     Active Substance: DACLATASVIR
     Indication: CHRONIC HEPATITIS C
     Dosage: FILM COATED TABLET, 30 MG DAILY, ORAL
     Route: 048
     Dates: start: 20131223, end: 20140301
  3. ATAZANAVIR (ATAZANAVIR SULFATE) [Concomitant]
  4. TENOFOVIR DF PLUS EMTRICITABINE (TENOFOVIR DISOPROXIL FUMARATE, EMTRICITABINE) [Concomitant]
  5. RANITIDINE [Concomitant]
     Active Substance: RANITIDINE\RANITIDINE HYDROCHLORIDE
  6. RIBAVIRIN. [Suspect]
     Active Substance: RIBAVIRIN
     Indication: CHRONIC HEPATITIS C
     Route: 048
     Dates: start: 20131223, end: 20140301
  7. BMS 914143 [Suspect]
     Active Substance: PEGINTERFERON LAMBDA-1A
     Indication: CHRONIC HEPATITIS C
     Dosage: 180 MCG ONCE WEEKLY, SUBCUTANEOUS
     Route: 058
     Dates: start: 20131223, end: 20140301
  8. METHADONE (METHADONE HCL) [Concomitant]

REACTIONS (5)
  - Jaundice [None]
  - Gamma-glutamyltransferase increased [None]
  - Hyperbilirubinaemia [None]
  - Alanine aminotransferase increased [None]
  - Aspartate aminotransferase increased [None]

NARRATIVE: CASE EVENT DATE: 20140304
